FAERS Safety Report 13347531 (Version 1)
Quarter: 2017Q1

REPORT INFORMATION
  Report Type: Report from Study
  Country: None (occurrence: DE)
  Receive Date: 20170317
  Receipt Date: 20170317
  Transmission Date: 20170428
  Serious: Yes (Death)
  Sender: FDA-Public Use
  Company Number: DE-ABBVIE-17P-062-1905498-00

PATIENT
  Age: 76 Year
  Sex: Male

DRUGS (2)
  1. AMLODIPIN [Concomitant]
     Active Substance: AMLODIPINE BESYLATE
     Indication: PRODUCT USED FOR UNKNOWN INDICATION
  2. DUODOPA [Suspect]
     Active Substance: CARBIDOPA\LEVODOPA
     Indication: PARKINSON^S DISEASE
     Dosage: MD 1 ML??CRD 2.6 ML/H??CRN 1.2 ML/H??ED 1 ML
     Route: 050
     Dates: start: 20071108

REACTIONS (1)
  - Death [Fatal]

NARRATIVE: CASE EVENT DATE: 20161230
